FAERS Safety Report 7931030-0 (Version None)
Quarter: 2011Q4

REPORT INFORMATION
  Report Type: 
  Country: None (occurrence: None)
  Receive Date: 20111121
  Receipt Date: 20111117
  Transmission Date: 20120403
  Serious: Yes (Hospitalization)
  Sender: FDA-Public Use
  Company Number: PHHO2011US019303

PATIENT
  Age: 55 Year
  Sex: Female

DRUGS (20)
  1. DIPHENHYDRAMINE HCL [Concomitant]
     Dosage: UNK
     Dates: start: 20111103, end: 20111103
  2. MAGNESIUM SULFATE [Concomitant]
     Dosage: UNK
     Dates: start: 20110713, end: 20110713
  3. INFLUENZA VACCINE [Concomitant]
     Dosage: UNK
     Dates: start: 20111027, end: 20111027
  4. LORAZEPAM [Concomitant]
     Dosage: UNK
     Dates: start: 20100902
  5. DOCUSATE SODIUM [Concomitant]
     Dosage: UNK
     Dates: start: 20100730
  6. ENOXAPARIN SODIUM [Concomitant]
     Dosage: UNK
     Dates: start: 20100730
  7. LEVOTHYROXINE SODIUM [Concomitant]
     Dosage: UNK
     Dates: start: 20100528
  8. PANTOPRAZOLE [Concomitant]
     Dosage: UNK
     Dates: start: 20100813
  9. SERTRALINE HYDROCHLORIDE [Concomitant]
     Dosage: UNK
     Dates: start: 20111025
  10. PACLITAXEL [Suspect]
     Indication: LUNG NEOPLASM MALIGNANT
     Dosage: UNK
     Route: 042
     Dates: start: 20110513
  11. FOLIC ACID [Concomitant]
     Dosage: UNK
     Dates: start: 20101206
  12. SENNA [Concomitant]
     Dosage: UNK
     Dates: start: 20110730
  13. ACETAMINOPHEN [Concomitant]
     Dosage: UNK
     Dates: start: 20110314
  14. PALONOSETRON HYDROCHLORIDE [Concomitant]
     Dosage: UNK
     Dates: start: 20111020, end: 20111020
  15. FENTANYL [Concomitant]
     Dosage: UNK
     Dates: start: 20110523
  16. RANITIDINE [Concomitant]
     Dosage: UNK
     Dates: start: 20111103, end: 20111103
  17. BKM120 [Suspect]
     Indication: LUNG NEOPLASM MALIGNANT
     Dosage: UNK
     Dates: start: 20110513
  18. CARBOPLATIN [Suspect]
     Indication: LUNG NEOPLASM MALIGNANT
     Dosage: UNK
     Route: 042
     Dates: start: 20110513
  19. DEXAMETHASONE [Concomitant]
     Dosage: UNK
     Dates: start: 20111103, end: 20111103
  20. OXYCODONE HCL [Concomitant]
     Dosage: UNK
     Dates: start: 20110523

REACTIONS (1)
  - BACK PAIN [None]
